FAERS Safety Report 8549510-6 (Version None)
Quarter: 2012Q3

REPORT INFORMATION
  Report Type: 
  Country: None (occurrence: None)
  Receive Date: 20120718
  Receipt Date: 20120625
  Transmission Date: 20120928
  Serious: Yes (Hospitalization, Other)
  Sender: FDA-Public Use
  Company Number: 2012P1047460

PATIENT
  Age: 62 Year
  Sex: Male

DRUGS (8)
  1. RANITIDINE [Concomitant]
  2. COMPOUND AMINO ACID 18AA [Concomitant]
  3. CEFUROXIME SODIUM [Suspect]
     Dosage: 1.5 GM, BID, IV
     Route: 042
  4. METHYLSULPHATE [Concomitant]
  5. HYDROCHLORIDE [Concomitant]
  6. METRONIDAZOLE [Concomitant]
  7. BATROXOBIN [Concomitant]
  8. NZOSTIGMINE [Concomitant]

REACTIONS (2)
  - DERMATITIS EXFOLIATIVE [None]
  - ULCERATIVE KERATITIS [None]
